FAERS Safety Report 13869120 (Version 1)
Quarter: 2017Q3

REPORT INFORMATION
  Report Type: Spontaneous
  Country: CZ (occurrence: CZ)
  Receive Date: 20170815
  Receipt Date: 20170815
  Transmission Date: 20171127
  Serious: Yes (Life-Threatening, Other)
  Sender: FDA-Public Use
  Company Number: CZ-TEVA-794268ACC

PATIENT
  Age: 17 Year
  Sex: Female

DRUGS (6)
  1. STOPEX [Suspect]
     Active Substance: DEXTROMETHORPHAN HYDROBROMIDE
     Indication: SUICIDE ATTEMPT
     Dosage: 450 MILLIGRAM DAILY;
     Route: 048
     Dates: start: 20150108, end: 20150108
  2. PENBENE [Suspect]
     Active Substance: PENICILLIN V
     Indication: SUICIDE ATTEMPT
     Dosage: 5000000 IU (INTERNATIONAL UNIT) DAILY;
     Route: 048
     Dates: start: 20150108, end: 20150108
  3. ANALERGIN (CETIRIZINE HYDROCHLORIDE) [Suspect]
     Active Substance: CETIRIZINE HYDROCHLORIDE
     Indication: SUICIDE ATTEMPT
     Dosage: 30 MILLIGRAM DAILY;
     Route: 048
     Dates: start: 20150108, end: 20150108
  4. PARALEN [Suspect]
     Active Substance: ACETAMINOPHEN
     Indication: SUICIDE ATTEMPT
     Dosage: 3000 MILLIGRAM DAILY;
     Route: 048
     Dates: start: 20150108, end: 20150108
  5. IBALGIN [Suspect]
     Active Substance: IBUPROFEN
     Indication: SUICIDE ATTEMPT
     Dosage: 4800 MILLIGRAM DAILY;
     Route: 048
     Dates: start: 20150108, end: 20150108
  6. ASENTRA [Suspect]
     Active Substance: SERTRALINE HYDROCHLORIDE
     Indication: SUICIDE ATTEMPT
     Dosage: 500 MILLIGRAM DAILY;
     Route: 048
     Dates: start: 20150108, end: 20150108

REACTIONS (3)
  - Suicide attempt [Unknown]
  - Overdose [Unknown]
  - Intentional product misuse [Unknown]

NARRATIVE: CASE EVENT DATE: 20150108
